FAERS Safety Report 7599607-2 (Version None)
Quarter: 2011Q3

REPORT INFORMATION
  Report Type: 
  Country: None (occurrence: None)
  Receive Date: 20110711
  Receipt Date: 20110127
  Transmission Date: 20111222
  Serious: Yes (Death, Hospitalization)
  Sender: FDA-Public Use
  Company Number: US-BAYER-201019228NA

PATIENT
  Age: 74 Year
  Sex: Male
  Weight: 91 kg

DRUGS (29)
  1. VYTORIN [Concomitant]
     Dosage: UNK
     Route: 048
     Dates: start: 20070202
  2. OMNIPAQUE 140 [Concomitant]
     Indication: CATHETERISATION CARDIAC
     Dosage: 100 ML, UNK
     Dates: start: 20040904
  3. HEPARIN [Concomitant]
     Dosage: 10000 U, UNK
     Route: 042
     Dates: start: 20070411, end: 20070411
  4. INSULIN [Concomitant]
     Dosage: 5 U/HR
     Route: 042
     Dates: start: 20070411, end: 20070411
  5. TRASYLOL [Suspect]
     Indication: CORONARY ARTERY BYPASS
     Dosage: 200 ML,LOADING DOSE, 50 ML/HR INFUSION DOSE
     Route: 042
     Dates: start: 20070411, end: 20070411
  6. TRASYLOL [Suspect]
     Indication: ANGIOPLASTY
  7. REGLAN [Concomitant]
     Indication: PRODUCT USED FOR UNKNOWN INDICATION
     Dosage: UNK
     Route: 048
     Dates: start: 20070301
  8. CLOPIDOGREL [Concomitant]
     Indication: PRODUCT USED FOR UNKNOWN INDICATION
     Dosage: 75 MG, UNK
     Route: 048
     Dates: start: 20070212
  9. CELEBREX [Concomitant]
     Dosage: 200 MG, QD
     Route: 048
     Dates: start: 20070101
  10. FENTANYL [Concomitant]
     Dosage: 35 ML, UNK
     Route: 042
     Dates: start: 20070411, end: 20070411
  11. NORVASC [Concomitant]
     Indication: PRODUCT USED FOR UNKNOWN INDICATION
     Dosage: UNK
     Route: 048
     Dates: start: 20070301
  12. METFORMIN HCL [Concomitant]
     Indication: DIABETES MELLITUS
     Dosage: 500 MG, UNK
     Route: 048
     Dates: start: 20020313
  13. ZOCOR [Concomitant]
     Indication: BLOOD CHOLESTEROL INCREASED
     Dosage: 40 MG, UNK
     Route: 048
     Dates: start: 20050105
  14. INDOCIN [Concomitant]
     Indication: PRODUCT USED FOR UNKNOWN INDICATION
  15. ASPIRIN [Concomitant]
     Indication: PRODUCT USED FOR UNKNOWN INDICATION
     Dosage: UNK
     Route: 048
     Dates: start: 20070301
  16. ZITHROMAX [Concomitant]
     Indication: INFECTION
     Dosage: UNK
     Route: 048
     Dates: start: 20020627
  17. COREG [Concomitant]
     Indication: PRODUCT USED FOR UNKNOWN INDICATION
     Dosage: 12.5 MG, UNK
     Route: 048
     Dates: start: 20040730
  18. RED BLOOD CELLS [Concomitant]
     Dosage: 2 U, UNK
     Route: 042
     Dates: start: 20070411
  19. CELEXA [Concomitant]
     Indication: PRODUCT USED FOR UNKNOWN INDICATION
     Dosage: UNK
     Route: 048
     Dates: start: 20070301
  20. LABETALOL HCL [Concomitant]
     Indication: BLOOD PRESSURE MANAGEMENT
     Dosage: 200 MG, UNK
     Route: 048
     Dates: start: 20030825
  21. LASIX [Concomitant]
     Indication: PRODUCT USED FOR UNKNOWN INDICATION
     Dosage: UNK
     Route: 048
     Dates: start: 20050104
  22. GLUCOTROL XL [Concomitant]
     Indication: DIABETES MELLITUS
     Dosage: 10 MG, UNK
     Dates: start: 19970101
  23. ENALAPRIL MALEATE [Concomitant]
     Indication: PRODUCT USED FOR UNKNOWN INDICATION
     Dosage: UNK
     Route: 048
     Dates: start: 20001229
  24. HYDROCHLOROTHIAZIDE [Concomitant]
     Indication: PRODUCT USED FOR UNKNOWN INDICATION
     Dosage: UNK
     Route: 048
     Dates: start: 20011130
  25. VYTORIN [Concomitant]
     Indication: BLOOD CHOLESTEROL INCREASED
     Dosage: UNK
     Route: 048
     Dates: start: 20070301
  26. CEFACLOR [Concomitant]
     Indication: ANTIBIOTIC THERAPY
     Dosage: UNK
     Dates: start: 20000228
  27. SUPRAX [Concomitant]
     Indication: ANTIBIOTIC THERAPY
     Dosage: 400 MG, UNK
     Dates: start: 19991208
  28. CEPHALEXIN [Concomitant]
     Indication: INFECTION
     Dosage: 500 MG, UNK
     Dates: start: 20011226
  29. PAVULON [Concomitant]
     Dosage: 10 MG, UNK
     Route: 042
     Dates: start: 20070411, end: 20070411

REACTIONS (16)
  - RENAL FAILURE ACUTE [None]
  - CARDIAC FAILURE CONGESTIVE [None]
  - PAIN [None]
  - STRESS [None]
  - RENAL IMPAIRMENT [None]
  - RESPIRATORY FAILURE [None]
  - MULTI-ORGAN FAILURE [None]
  - CEREBROVASCULAR ACCIDENT [None]
  - URAEMIC ENCEPHALOPATHY [None]
  - EMOTIONAL DISTRESS [None]
  - ANAEMIA [None]
  - INJURY [None]
  - FEAR OF DEATH [None]
  - DYSPNOEA [None]
  - ARRHYTHMIA [None]
  - DEPRESSION [None]
